FAERS Safety Report 4789714-1 (Version None)
Quarter: 2005Q4

REPORT INFORMATION
  Report Type: 
  Country: None (occurrence: None)
  Receive Date: 20051005
  Receipt Date: 20051005
  Transmission Date: 20060501
  Serious: Yes (Hospitalization)
  Sender: FDA-Public Use
  Company Number: None

PATIENT
  Sex: Female
  Weight: 102.8 kg

DRUGS (10)
  1. TEMOZOLOMIDE [Suspect]
     Indication: NEOPLASM
     Dosage: SEE IMAGE
     Dates: start: 20050626, end: 20050808
  2. TEMOZOLOMIDE [Suspect]
     Indication: NEOPLASM
     Dosage: SEE IMAGE
     Dates: start: 20050626
  3. IRINOTECAN [Suspect]
     Dosage: SEE IMAGE
  4. RADIATION THERAPY [Suspect]
     Dosage: SEE IMAGE
  5. EFFEXOR [Concomitant]
  6. PERCOCET [Concomitant]
  7. SENOKOT [Concomitant]
  8. ZOFRAN [Concomitant]
  9. DECADRON [Concomitant]
  10. OMEPRAZOLE [Concomitant]

REACTIONS (10)
  - ARTHRALGIA [None]
  - ASTHENIA [None]
  - DIFFICULTY IN WALKING [None]
  - HAEMOGLOBIN ABNORMAL [None]
  - KARNOFSKY SCALE WORSENED [None]
  - MALAISE [None]
  - MYALGIA [None]
  - MYOPATHY STEROID [None]
  - NAUSEA [None]
  - VOMITING [None]
